FAERS Safety Report 7791564-9 (Version None)
Quarter: 2011Q4

REPORT INFORMATION
  Report Type: 
  Country: None (occurrence: None)
  Receive Date: 20111003
  Receipt Date: 20110928
  Transmission Date: 20120403
  Serious: Yes (Death)
  Sender: FDA-Public Use
  Company Number: US-AMGEN-USASP2011048746

PATIENT
  Sex: Male
  Weight: 59.864 kg

DRUGS (5)
  1. PREDNISONE [Concomitant]
     Indication: PNEUMONIA NECROTISING
     Dosage: 15 MG, QD
     Dates: start: 20110705, end: 20110801
  2. VORICONAZOLE [Concomitant]
     Indication: PNEUMONIA NECROTISING
     Dosage: 200 MG, BID
     Route: 048
     Dates: start: 20110705, end: 20110801
  3. NPLATE [Suspect]
     Indication: IDIOPATHIC THROMBOCYTOPENIC PURPURA
     Dosage: 250 MUG, ONE TIME DOSE
     Route: 058
     Dates: start: 20110817, end: 20110817
  4. CORTICOSTEROIDS [Concomitant]
     Indication: IDIOPATHIC THROMBOCYTOPENIC PURPURA
  5. IMMUNOGLOBULINS [Concomitant]
     Indication: IDIOPATHIC THROMBOCYTOPENIC PURPURA
     Dosage: UNK MUG/KG, UNK

REACTIONS (1)
  - ACUTE PROMYELOCYTIC LEUKAEMIA [None]
